FAERS Safety Report 10097984 (Version 1)
Quarter: 2014Q2

REPORT INFORMATION
  Report Type: Spontaneous
  Country: JP (occurrence: JP)
  Receive Date: 20140423
  Receipt Date: 20140423
  Transmission Date: 20141212
  Serious: Yes (Hospitalization, Other)
  Sender: FDA-Public Use
  Company Number: JP-BRISTOL-MYERS SQUIBB COMPANY-20662706

PATIENT
  Age: 49 Year
  Sex: Female
  Weight: 62.6 kg

DRUGS (8)
  1. ABILIFY TABS [Suspect]
     Indication: BIPOLAR I DISORDER
     Dosage: 6MG TABS?12MGTO15APR13;18MG/DAY16APR-1JUL13;?6MG/DAY 2JUL13-21JUL13?12MG/DAY22JUL13-7MAR14
     Route: 048
     Dates: start: 20120501, end: 20140307
  2. AKINETON [Concomitant]
     Dosage: TABS
     Dates: start: 20010809
  3. ROHYPNOL [Concomitant]
     Dates: start: 20010809
  4. BROTIZOLAM [Concomitant]
     Dates: start: 20110723
  5. ATARAX P [Concomitant]
     Dosage: CAPS
     Dates: start: 20120914
  6. ROZEREM [Concomitant]
     Dosage: TABS
     Dates: start: 20121006
  7. ZANTAC [Concomitant]
  8. LIPIDIL [Concomitant]
     Dosage: TABS

REACTIONS (1)
  - Pulmonary embolism [Recovered/Resolved with Sequelae]
